FAERS Safety Report 5514905-1 (Version None)
Quarter: 2007Q4

REPORT INFORMATION
  Report Type: 
  Country: None (occurrence: None)
  Receive Date: 20071113
  Receipt Date: 20060928
  Transmission Date: 20080405
  Serious: No
  Sender: FDA-Public Use
  Company Number: A0621806A

PATIENT
  Age: 81 Year
  Sex: Male

DRUGS (10)
  1. COREG [Suspect]
     Dosage: 12.5MG TWICE PER DAY
     Route: 048
     Dates: start: 20050916
  2. OCUVITE [Concomitant]
  3. ALBUTEROL [Concomitant]
  4. COLACE [Concomitant]
  5. LASIX [Concomitant]
  6. PROTONIX [Concomitant]
  7. ENALAPRIL MALEATE [Concomitant]
  8. DIGOXIN [Concomitant]
  9. GLYBURIDE [Concomitant]
  10. LEVOXYL [Concomitant]

REACTIONS (1)
  - ALOPECIA [None]
